FAERS Safety Report 7934083-9 (Version None)
Quarter: 2011Q4

REPORT INFORMATION
  Report Type: 
  Country: None (occurrence: None)
  Receive Date: 20111122
  Receipt Date: 20111117
  Transmission Date: 20120403
  Serious: Yes (Hospitalization)
  Sender: FDA-Public Use
  Company Number: US-ROCHE-769045

PATIENT
  Sex: Male

DRUGS (13)
  1. MYCOSTATIN [Concomitant]
  2. COLACE [Concomitant]
     Route: 048
     Dates: start: 20110812, end: 20110812
  3. FENTANYL-100 [Concomitant]
     Dosage: 100 MCG/HR
     Dates: start: 20110330
  4. AVASTIN [Suspect]
     Indication: OESOPHAGEAL ADENOCARCINOMA
     Route: 042
     Dates: start: 20101216, end: 20110314
  5. ATIVAN [Concomitant]
  6. SENNA [Concomitant]
  7. CELEXA [Concomitant]
  8. NORCO [Concomitant]
  9. VITAMIN B-12 [Concomitant]
  10. COMPAZINE [Concomitant]
     Dates: start: 20110330
  11. XELODA [Suspect]
     Indication: OESOPHAGEAL ADENOCARCINOMA
     Dosage: LAST DOSE PRIOR TO SAE: 14 MARCH 2011  FREQUENCY: 14 DAYS ON AND 7 DAYS OFF
     Route: 065
  12. AMBIEN [Concomitant]
  13. CARBOPLATIN [Suspect]
     Indication: OESOPHAGEAL ADENOCARCINOMA
     Dosage: LAST DOSE PRIOR TO SAE: 14 MARCH 2011
     Route: 065

REACTIONS (3)
  - DISEASE PROGRESSION [None]
  - BACK PAIN [None]
  - ABDOMINAL PAIN [None]
